FAERS Safety Report 7239185-0 (Version None)
Quarter: 2011Q1

REPORT INFORMATION
  Report Type: 
  Country: None (occurrence: None)
  Receive Date: 20110121
  Receipt Date: 20090810
  Transmission Date: 20110831
  Serious: Yes (Other)
  Sender: FDA-Public Use
  Company Number: PHHY2009HU67092

PATIENT
  Sex: Female

DRUGS (3)
  1. CYCLOSPORINE [Suspect]
     Dosage: UNK
  2. RITUXIMAB [Concomitant]
     Dosage: UNK
     Dates: start: 20070101
  3. ADALIMUMAB [Concomitant]
     Dosage: UNK
     Dates: start: 20060101

REACTIONS (2)
  - OEDEMA [None]
  - RASH [None]
